FAERS Safety Report 7441522-9 (Version None)
Quarter: 2011Q2

REPORT INFORMATION
  Report Type: 
  Country: None (occurrence: None)
  Receive Date: 20110420
  Receipt Date: 20110405
  Transmission Date: 20111010
  Serious: Yes (Death)
  Sender: FDA-Public Use
  Company Number: 2011AR0097

PATIENT
  Age: 6 Year
  Sex: Male

DRUGS (1)
  1. ORFADIN [Suspect]
     Indication: TYROSINAEMIA
     Dosage: 1,3 MG/KG (1,3 MG/KG, 1 IN 1 D),
     Dates: start: 20050812, end: 20110301

REACTIONS (2)
  - HEPATIC NEOPLASM MALIGNANT [None]
  - OESOPHAGEAL HAEMORRHAGE [None]
